FAERS Safety Report 4962824-1 (Version None)
Quarter: 2006Q2

REPORT INFORMATION
  Report Type: 
  Country: None (occurrence: None)
  Receive Date: 20060403
  Receipt Date: 20060403
  Transmission Date: 20061013
  Serious: Yes (Life-Threatening)
  Sender: FDA-Public Use
  Company Number: None

PATIENT
  Sex: Female
  Weight: 51.1657 kg

DRUGS (6)
  1. BACTRIM DS [Suspect]
     Indication: INFECTION
     Dosage: 1 TABLET   BID   PO
     Route: 048
     Dates: start: 20050817, end: 20050824
  2. GABAPENTIN [Concomitant]
  3. ACETAMINOPHEN AND HYDROCODONE BITARTRATE [Concomitant]
  4. LAMOTRIGINE [Concomitant]
  5. METHADONE [Concomitant]
  6. QUETIAPINE FUMARATE [Concomitant]

REACTIONS (1)
  - PANCREATITIS [None]
